FAERS Safety Report 12232776 (Version 1)
Quarter: 2016Q2

REPORT INFORMATION
  Report Type: Other
  Country: FR (occurrence: FR)
  Receive Date: 20160402
  Receipt Date: 20160402
  Transmission Date: 20160815
  Serious: No
  Sender: FDA-Public Use
  Company Number: FR-LUPIN PHARMACEUTICALS INC.-2016-01077

PATIENT
  Age: 57 Year
  Sex: Male

DRUGS (7)
  1. CLARITHROMYCIN. [Suspect]
     Active Substance: CLARITHROMYCIN
     Indication: MYCOBACTERIUM CHELONAE INFECTION
     Route: 065
  2. CLARITHROMYCIN. [Interacting]
     Active Substance: CLARITHROMYCIN
     Route: 065
  3. LINEZOLID. [Interacting]
     Active Substance: LINEZOLID
     Indication: MYCOBACTERIUM CHELONAE INFECTION
     Route: 065
  4. AZITHROMYCIN ANHYDROUS. [Interacting]
     Active Substance: AZITHROMYCIN ANHYDROUS
     Indication: MYCOBACTERIUM CHELONAE INFECTION
     Route: 065
  5. TOBRAMYCIN. [Interacting]
     Active Substance: TOBRAMYCIN
     Route: 065
  6. TOBRAMYCIN. [Interacting]
     Active Substance: TOBRAMYCIN
     Indication: MYCOBACTERIUM CHELONAE INFECTION
     Route: 065
  7. IMIPENEM [Interacting]
     Active Substance: IMIPENEM
     Indication: MYCOBACTERIUM CHELONAE INFECTION
     Route: 065

REACTIONS (3)
  - Drug interaction [Unknown]
  - Gastrointestinal disorder [Unknown]
  - Vestibular disorder [Unknown]
